FAERS Safety Report 4951839-5 (Version None)
Quarter: 2006Q1

REPORT INFORMATION
  Report Type: 
  Country: None (occurrence: None)
  Receive Date: 20060323
  Receipt Date: 20060301
  Transmission Date: 20060701
  Serious: Yes (Hospitalization)
  Sender: FDA-Public Use
  Company Number: US-MERCK-0603USA00504

PATIENT
  Age: 52 Year
  Sex: Female
  Weight: 84 kg

DRUGS (6)
  1. VIOXX [Suspect]
     Indication: OSTEOARTHRITIS
     Route: 048
     Dates: start: 20000101, end: 20020701
  2. HYDROCHLOROTHIAZIDE [Concomitant]
     Route: 065
  3. ASPIRIN [Concomitant]
     Route: 065
  4. THIAMINE [Concomitant]
     Route: 065
  5. DILANTIN [Concomitant]
     Route: 065
  6. TRIAMTERENE [Concomitant]
     Route: 065

REACTIONS (4)
  - ALCOHOL POISONING [None]
  - CEREBRAL INFARCTION [None]
  - CEREBROVASCULAR ACCIDENT [None]
  - CONVULSION [None]
